FAERS Safety Report 24168789 (Version 1)
Quarter: 2024Q3

REPORT INFORMATION
  Report Type: Spontaneous
  Country: US (occurrence: None)
  Receive Date: 20240802
  Receipt Date: 20240802
  Transmission Date: 20241016
  Serious: No
  Sender: Public
  Company Number: None

PATIENT

DRUGS (2)
  1. ARTIFICIAL TEARS LUBRICANT EYE DROPS (GLYCERIN\PROPYLENE GLYCOL) [Suspect]
     Active Substance: GLYCERIN\PROPYLENE GLYCOL
  2. COSMETICS [Concomitant]
     Active Substance: COSMETICS

REACTIONS (4)
  - Wrong product administered [None]
  - Injury associated with device [None]
  - Product container issue [None]
  - Product label confusion [None]
